FAERS Safety Report 16254678 (Version 3)
Quarter: 2022Q1

REPORT INFORMATION
  Report Type: Spontaneous
  Country: ES (occurrence: ES)
  Receive Date: 20190430
  Receipt Date: 20220221
  Transmission Date: 20220423
  Serious: Yes (Hospitalization, Other)
  Sender: FDA-Public Use
  Company Number: ES-AUROBINDO-AUR-APL-2019-023249

PATIENT
  Age: 74 Year
  Sex: Male

DRUGS (1)
  1. OLMESARTAN [Suspect]
     Active Substance: OLMESARTAN
     Indication: Product used for unknown indication
     Dosage: TREATED WITH OLMESARTAN, I.N.N 40MG FOR 6 YEARS
     Route: 065

REACTIONS (12)
  - Abdominal pain upper [Recovered/Resolved]
  - Balance disorder [Recovered/Resolved]
  - Diarrhoea [Recovered/Resolved]
  - Dizziness [Recovered/Resolved]
  - Nausea [Recovered/Resolved]
  - Vomiting [Recovered/Resolved]
  - Tremor [Recovered/Resolved]
  - Erosive duodenitis [Unknown]
  - Hypocalcaemia [Recovering/Resolving]
  - Enteritis [Unknown]
  - Hypomagnesaemia [Recovering/Resolving]
  - Malabsorption [Recovering/Resolving]
